FAERS Safety Report 23065523 (Version 1)
Quarter: 2023Q4

REPORT INFORMATION
  Report Type: Spontaneous
  Country: NL (occurrence: US)
  Receive Date: 20231013
  Receipt Date: 20231013
  Transmission Date: 20240109
  Serious: Yes (Hospitalization)
  Sender: FDA-Public Use
  Company Number: NL-PRINSTON PHARMACEUTICAL INC.-2023PRN00511

PATIENT
  Age: 35 Year
  Sex: Female

DRUGS (1)
  1. BUPROPION [Suspect]
     Active Substance: BUPROPION
     Dosage: 30 TABLETS
     Route: 048

REACTIONS (8)
  - Intentional overdose [Recovered/Resolved]
  - Seizure [Recovered/Resolved]
  - Hypotension [Recovered/Resolved]
  - Ileus [Recovered/Resolved]
  - Ventricular tachycardia [Recovered/Resolved]
  - Toxicity to various agents [Recovered/Resolved]
  - Cardiogenic shock [Recovered/Resolved]
  - Myoclonus [Recovered/Resolved]
